FAERS Safety Report 18072547 (Version 1)
Quarter: 2020Q3

REPORT INFORMATION
  Report Type: Spontaneous
  Country: US (occurrence: US)
  Receive Date: 20200724
  Receipt Date: 20200724
  Transmission Date: 20201103
  Serious: Yes (Hospitalization)
  Sender: FDA-Public Use
  Company Number: None

PATIENT
  Sex: Male

DRUGS (1)
  1. BLOCPAIN [Suspect]
     Active Substance: MENTHOL
     Dosage: ?          OTHER DOSE:SPRAY UPTO 4 TIMES;?
     Route: 061

REACTIONS (3)
  - Thermal burn [None]
  - Burning sensation [None]
  - Burns third degree [None]
